FAERS Safety Report 16962563 (Version 1)
Quarter: 2019Q4

REPORT INFORMATION
  Report Type: Spontaneous
  Country: US (occurrence: US)
  Receive Date: 20191025
  Receipt Date: 20191025
  Transmission Date: 20200122
  Serious: No
  Sender: FDA-Public Use
  Company Number: US-BAUSCH-BL-2019-057697

PATIENT
  Sex: Female

DRUGS (2)
  1. TRULANCE [Suspect]
     Active Substance: PLECANATIDE
     Dosage: STARTED AGAIN
     Route: 048
     Dates: start: 2019, end: 2019
  2. TRULANCE [Suspect]
     Active Substance: PLECANATIDE
     Indication: CONSTIPATION
     Dosage: STARTED ABOUT A MONTH AGO
     Route: 048
     Dates: start: 2019, end: 2019

REACTIONS (9)
  - Therapeutic response unexpected [Unknown]
  - Depression [Unknown]
  - Constipation [Unknown]
  - Symptom recurrence [Unknown]
  - Abdominal distension [Unknown]
  - Fatigue [Unknown]
  - Night sweats [Unknown]
  - Rash [Unknown]
  - Defaecation urgency [Unknown]

NARRATIVE: CASE EVENT DATE: 2019
